FAERS Safety Report 24890892 (Version 1)
Quarter: 2025Q1

REPORT INFORMATION
  Report Type: Spontaneous
  Country: US (occurrence: None)
  Receive Date: 20250126
  Receipt Date: 20250126
  Transmission Date: 20250408
  Serious: Yes (Hospitalization, Disabling)
  Sender: FDA-CTU
  Company Number: None

PATIENT
  Age: 45 Year
  Sex: Female
  Weight: 83.25 kg

DRUGS (2)
  1. HERBALS\HONEY [Suspect]
     Active Substance: HERBALS\HONEY
     Indication: Asthenia
     Dates: start: 20250124, end: 20250124
  2. VIAGRA [Suspect]
     Active Substance: SILDENAFIL CITRATE

REACTIONS (4)
  - Headache [None]
  - Back pain [None]
  - Deafness transitory [None]
  - Screaming [None]

NARRATIVE: CASE EVENT DATE: 20250124
